FAERS Safety Report 10067489 (Version 1)
Quarter: 2014Q2

REPORT INFORMATION
  Report Type: Spontaneous
  Country: FR (occurrence: FR)
  Receive Date: 20140409
  Receipt Date: 20140409
  Transmission Date: 20141212
  Serious: Yes (Hospitalization)
  Sender: FDA-Public Use
  Company Number: FR-JNJFOC-20140317988

PATIENT
  Age: 93 Year
  Sex: Male

DRUGS (12)
  1. DUROGESIC [Suspect]
     Indication: ABDOMINAL PAIN
     Route: 062
  2. DUROGESIC [Suspect]
     Indication: ABDOMINAL PAIN
     Dosage: TWICE TIME PER DAY FOR A DURATION OF ABOUT 1 HOUR
     Route: 062
     Dates: start: 20140304
  3. DUROGESIC [Suspect]
     Indication: ABDOMINAL PAIN
     Route: 062
  4. DUROGESIC [Suspect]
     Indication: METASTATIC PAIN
     Route: 062
  5. DUROGESIC [Suspect]
     Indication: METASTATIC PAIN
     Dosage: TWICE TIME PER DAY FOR A DURATION OF ABOUT 1 HOUR
     Route: 062
     Dates: start: 20140304
  6. DUROGESIC [Suspect]
     Indication: METASTATIC PAIN
     Route: 062
  7. ATARAX [Suspect]
     Indication: METASTATIC PAIN
     Route: 048
  8. ACTISKENAN [Suspect]
     Indication: METASTATIC PAIN
     Route: 048
  9. ACTISKENAN [Suspect]
     Indication: METASTATIC PAIN
     Route: 048
  10. KARDEGIC [Concomitant]
     Indication: PRODUCT USED FOR UNKNOWN INDICATION
     Route: 065
  11. TARDYFERON [Concomitant]
     Indication: PRODUCT USED FOR UNKNOWN INDICATION
     Route: 065
  12. LEVOFLOXACINE [Concomitant]
     Indication: PRODUCT USED FOR UNKNOWN INDICATION
     Route: 065

REACTIONS (3)
  - Agitation [Recovered/Resolved]
  - Inappropriate schedule of drug administration [Unknown]
  - Wrong technique in drug usage process [Unknown]
